FAERS Safety Report 16437056 (Version 7)
Quarter: 2020Q2

REPORT INFORMATION
  Report Type: Report from Study
  Country: PL (occurrence: PL)
  Receive Date: 20190614
  Receipt Date: 20200522
  Transmission Date: 20200713
  Serious: Yes (Death, Life-Threatening, Hospitalization)
  Sender: FDA-Public Use
  Company Number: PL-AMGEN-POLCT2019095467

PATIENT
  Age: 66 Year
  Sex: Male
  Weight: 115 kg

DRUGS (24)
  1. ACETYLSALICYLIC ACID [Concomitant]
     Active Substance: ASPIRIN
     Dosage: 75 MILLIGRAM
     Dates: start: 20150615
  2. METHYLPREDNISOLONE. [Concomitant]
     Active Substance: METHYLPREDNISOLONE
     Dosage: 20 MILLIGRAM
     Route: 048
     Dates: start: 20171214
  3. MONTELUCAST [Concomitant]
     Active Substance: MONTELUKAST SODIUM
     Dosage: 10 MILLIGRAM, 10 MILLIEQUIVALENT
     Route: 048
     Dates: start: 20171213
  4. CYANOCOBALAMIN W/PYRIDOXINE/THIAMINE [Concomitant]
     Dosage: 1 UNK
     Dates: start: 20180521
  5. CLEMASTINE [Concomitant]
     Active Substance: CLEMASTINE
     Dosage: 1-2 MILLIGRAM
     Dates: start: 20171213
  6. GABAPENTIN. [Concomitant]
     Active Substance: GABAPENTIN
     Dosage: 300 MILLIGRAM
     Dates: start: 20180702
  7. TRAMADOL HYDROCHLORIDE AND PARACETAMOL [Concomitant]
     Active Substance: ACETAMINOPHEN\TRAMADOL HYDROCHLORIDE
     Dosage: 1 UNK
     Dates: start: 20180218
  8. CALCIUM CARBONATE W/COLECALCIFEROL [Concomitant]
     Active Substance: CALCIUM CARBONATE\CHOLECALCIFEROL
     Dosage: 2500880 UNK
     Dates: start: 20171214
  9. ZOLEDRONIC ACID [Concomitant]
     Active Substance: ZOLEDRONIC ACID
     Dosage: 4 MILLIGRAM
     Dates: start: 20171214
  10. PANTOPRAZOLE [Concomitant]
     Active Substance: PANTOPRAZOLE
     Dosage: 20 MILLIGRAM
     Route: 048
     Dates: start: 20171214
  11. DARATUMUMAB [Suspect]
     Active Substance: DARATUMUMAB
     Indication: PLASMA CELL MYELOMA
     Dosage: 1840 MILLIGRAM, PER CHEMO REGIM
     Route: 042
     Dates: start: 20171213
  12. CLEMASTIN [Concomitant]
     Active Substance: CLEMASTINE
     Dosage: 1-2 MILLIGRAM
     Dates: start: 20180117
  13. DEXAMETHASONE. [Concomitant]
     Active Substance: DEXAMETHASONE
     Indication: PLASMA CELL MYELOMA
     Dosage: 20-40 MILLIGRAM
     Dates: start: 20171213
  14. CEFUROXIME AXETIL. [Concomitant]
     Active Substance: CEFUROXIME AXETIL
     Dosage: 500 MILLIGRAM
     Dates: start: 20190408, end: 20190412
  15. CAPTOPRIL. [Concomitant]
     Active Substance: CAPTOPRIL
     Dosage: 25 MILLIGRAM
     Dates: start: 20190423, end: 20190423
  16. PARACETAMOL [Concomitant]
     Active Substance: ACETAMINOPHEN
     Dosage: 1000 MILLIGRAM
     Route: 048
     Dates: start: 20171213
  17. CARFILZOMIB [Suspect]
     Active Substance: CARFILZOMIB
     Indication: PLASMA CELL MYELOMA
     Dosage: UNK UNK, PER CHEMO REGIM
     Route: 042
     Dates: start: 20171213
  18. COTRIMOXAZOLE [Concomitant]
     Active Substance: SULFAMETHOXAZOLE\TRIMETHOPRIM
     Dosage: 960 MILLIGRAM
     Dates: start: 20171214
  19. ACICLOVIR [Concomitant]
     Active Substance: ACYCLOVIR
     Dosage: 400 MILLIGRAM
     Dates: start: 20171214
  20. ALLOPURINOL. [Concomitant]
     Active Substance: ALLOPURINOL
     Dosage: 300 MILLIGRAM
     Dates: start: 20171214
  21. POTASSIUM CHLORIDE. [Concomitant]
     Active Substance: POTASSIUM CHLORIDE
     Dosage: 1 UNK
     Dates: start: 20181120
  22. ENOXAPARIN SODIUM. [Concomitant]
     Active Substance: ENOXAPARIN SODIUM
     Dosage: 80 MILLIGRAM
     Dates: start: 20180818
  23. PHOSPHOLIPIDS [Concomitant]
     Active Substance: OMEGA-3 FATTY ACIDS
     Dosage: 300 MILLIGRAM
     Dates: start: 20120615
  24. OMEPRAZOLE. [Concomitant]
     Active Substance: OMEPRAZOLE
     Dosage: 20 MILLIGRAM AND  20 MILLIEQUIVALENT
     Route: 048
     Dates: start: 20180117

REACTIONS (3)
  - Pneumonia [Recovered/Resolved]
  - Pneumonia [Recovered/Resolved]
  - Pneumonia [Fatal]

NARRATIVE: CASE EVENT DATE: 20190527
